FAERS Safety Report 22312200 (Version 1)
Quarter: 2023Q2

REPORT INFORMATION
  Report Type: Other
  Country: GB (occurrence: None)
  Receive Date: 20230512
  Receipt Date: 20230512
  Transmission Date: 20230722
  Serious: Yes (Other)
  Sender: FDA-Public Use
  Company Number: GB-ROCHE-3347817

PATIENT
  Sex: Female

DRUGS (1)
  1. TOCILIZUMAB [Suspect]
     Active Substance: TOCILIZUMAB
     Indication: Rheumatoid arthritis
     Route: 058
     Dates: start: 20230415

REACTIONS (8)
  - Wrist fracture [Unknown]
  - Swelling face [Unknown]
  - Illness [Unknown]
  - Nausea [Unknown]
  - Dizziness [Unknown]
  - Swelling [Unknown]
  - Abdominal pain upper [Unknown]
  - Fall [Unknown]
